FAERS Safety Report 6159940-8 (Version None)
Quarter: 2009Q2

REPORT INFORMATION
  Report Type: 
  Country: None (occurrence: None)
  Receive Date: 20090420
  Receipt Date: 20090407
  Transmission Date: 20091009
  Serious: Yes (Other)
  Sender: FDA-Public Use
  Company Number: JP-PURDUE-MAG_2008_0000742

PATIENT
  Age: 67 Year
  Sex: Female

DRUGS (8)
  1. OXYCODONE HCL [Suspect]
     Indication: CANCER PAIN
     Dosage: 2.5 MG, QID
     Route: 048
     Dates: start: 20080318, end: 20080319
  2. OXYCODONE HYDROCHLORIDE [Suspect]
     Indication: CANCER PAIN
     Dosage: 5 MG, BID
     Route: 048
     Dates: start: 20080225
  3. VOLTAREN [Concomitant]
     Indication: CANCER PAIN
     Dosage: 75 MG, DAILY
     Route: 048
  4. MAGNESIUM OXIDE [Concomitant]
     Indication: PROPHYLAXIS
     Dosage: 1.5 GRAM, DAILY
     Route: 048
     Dates: start: 20080225
  5. NOVAMIN                            /00013301/ [Concomitant]
     Indication: PROPHYLAXIS
     Dosage: 15 MG, DAILY
     Route: 048
     Dates: start: 20080225
  6. BLOPRESS [Concomitant]
     Indication: DRUG USE FOR UNKNOWN INDICATION
     Dosage: 8 MG, DAILY
     Route: 048
  7. FLUITRAN [Concomitant]
     Indication: DRUG USE FOR UNKNOWN INDICATION
     Dosage: 2 MG, DAILY
     Route: 048
  8. LENDORMIN [Concomitant]
     Indication: DRUG USE FOR UNKNOWN INDICATION
     Dosage: .25 MG, DAILY
     Route: 048

REACTIONS (3)
  - BACK PAIN [None]
  - FALL [None]
  - METASTASES TO BONE [None]
